FAERS Safety Report 8073880-9 (Version None)
Quarter: 2011Q4

REPORT INFORMATION
  Report Type: 
  Country: None (occurrence: None)
  Receive Date: 20111221
  Receipt Date: 20110803
  Transmission Date: 20120403
  Serious: Yes (Hospitalization)
  Sender: FDA-Public Use
  Company Number: PHHY2011US27421

PATIENT
  Age: 38 Year
  Sex: Female
  Weight: 85 kg

DRUGS (12)
  1. FOLIC ACID [Concomitant]
  2. EXJADE [Suspect]
     Indication: SICKLE CELL ANAEMIA
     Dosage: 1500 MG, DAILY, ORAL
     Route: 048
     Dates: start: 20110310
  3. ASPIRIN [Concomitant]
  4. ATENOLOL [Concomitant]
  5. IMITREX (SUAMTRIPTAN SUCCINATE) [Concomitant]
  6. ZANTAC [Concomitant]
  7. GABAPENTIN [Concomitant]
  8. AMIODARONE HCL [Concomitant]
  9. KEPPRA [Concomitant]
  10. MULTIVITAMINS (ASCORBIC ACID, ERGOCALCIFEROL, FOILC ACID, NICOTINAMIDE [Concomitant]
  11. CELEXA [Concomitant]
  12. HYDROXYUREA [Concomitant]

REACTIONS (3)
  - ABDOMINAL DISCOMFORT [None]
  - SICKLE CELL ANAEMIA WITH CRISIS [None]
  - NAUSEA [None]
